FAERS Safety Report 24677702 (Version 1)
Quarter: 2024Q4

REPORT INFORMATION
  Report Type: Spontaneous
  Country: BG (occurrence: BG)
  Receive Date: 20241129
  Receipt Date: 20241129
  Transmission Date: 20250114
  Serious: Yes (Other)
  Sender: MERCK
  Company Number: None

PATIENT
  Age: 69 Year
  Sex: Female
  Weight: 59 kg

DRUGS (3)
  1. KEYTRUDA [Suspect]
     Active Substance: PEMBROLIZUMAB
     Indication: Non-small cell lung cancer metastatic
     Dosage: 2 VIALS EVERY 21 DAYS
     Route: 042
     Dates: start: 20240222
  2. PREDNISOLON CORTICO [Concomitant]
     Dosage: PREDNISOLONE CORTICO 5 MG
  3. ESSENTIALE MAX [Concomitant]
     Dosage: ESSENCIALE MAX 600 MG (PHOSPHOLIPIDS FROM SOYA BEANS)

REACTIONS (3)
  - Hepatic enzyme increased [Not Recovered/Not Resolved]
  - Blood creatinine increased [Not Recovered/Not Resolved]
  - Hypothyroidism [Not Recovered/Not Resolved]
